FAERS Safety Report 6411811-5 (Version None)
Quarter: 2009Q4

REPORT INFORMATION
  Report Type: 
  Country: None (occurrence: None)
  Receive Date: 20091023
  Receipt Date: 20091016
  Transmission Date: 20100525
  Serious: Yes (Other)
  Sender: FDA-Public Use
  Company Number: GB-ASTRAZENECA-2009SE20699

PATIENT
  Age: 44 Year
  Sex: Female

DRUGS (6)
  1. QUETIAPINE [Suspect]
     Route: 048
  2. CLOZARIL [Suspect]
     Indication: SCHIZOPHRENIA
     Route: 048
     Dates: start: 20070521, end: 20070921
  3. CITALOPRAM HYDROBROMIDE [Concomitant]
     Indication: OBSESSIVE-COMPULSIVE DISORDER
     Route: 048
     Dates: start: 20070713
  4. NEUPOGEN [Concomitant]
     Route: 065
  5. HYOSCINE [Concomitant]
     Indication: SALIVARY HYPERSECRETION
     Route: 062
     Dates: start: 20070713, end: 20070922
  6. SENNA [Concomitant]
     Indication: CONSTIPATION
     Route: 048
     Dates: start: 20070726, end: 20070922

REACTIONS (2)
  - NEUTROPHIL COUNT DECREASED [None]
  - WHITE BLOOD CELL COUNT DECREASED [None]
